FAERS Safety Report 24131078 (Version 1)
Quarter: 2024Q3

REPORT INFORMATION
  Report Type: Spontaneous
  Country: US (occurrence: US)
  Receive Date: 20240724
  Receipt Date: 20240724
  Transmission Date: 20241017
  Serious: No
  Sender: DR REDDYS
  Company Number: US-DRL-USA-LIT/USA/24/0010379

PATIENT
  Age: 9 Year
  Sex: Female

DRUGS (5)
  1. VALGANCICLOVIR [Suspect]
     Active Substance: VALGANCICLOVIR
     Indication: Antiviral prophylaxis
  2. TACROLIMUS [Suspect]
     Active Substance: TACROLIMUS
     Indication: Inflammatory bowel disease
  3. MYCOPHENOLIC ACID [Suspect]
     Active Substance: MYCOPHENOLIC ACID
     Indication: Inflammatory bowel disease
  4. SULFASALAZINE [Concomitant]
     Active Substance: SULFASALAZINE
     Indication: Inflammatory bowel disease
  5. MESALAMINE [Concomitant]
     Active Substance: MESALAMINE

REACTIONS (3)
  - Drug ineffective [Unknown]
  - Gastrointestinal disorder [Unknown]
  - Product use in unapproved indication [Unknown]
